FAERS Safety Report 8501515-7 (Version None)
Quarter: 2012Q3

REPORT INFORMATION
  Report Type: 
  Country: None (occurrence: None)
  Receive Date: 20120710
  Receipt Date: 20120703
  Transmission Date: 20120928
  Serious: No
  Sender: FDA-Public Use
  Company Number: US-B.I. PHARMACEUTICALS,INC./RIDGEFIELD-2012-BP-14950BP

PATIENT
  Sex: Female

DRUGS (13)
  1. SYNTHROID [Concomitant]
     Indication: HYPOTHYROIDISM
     Route: 048
  2. ALBUTEROL [Concomitant]
     Indication: ASTHMA
     Route: 055
  3. PREVACID [Concomitant]
     Indication: GASTROOESOPHAGEAL REFLUX DISEASE
     Route: 048
  4. AMBIEN [Concomitant]
     Indication: INSOMNIA
     Route: 048
  5. SPIRIVA [Suspect]
     Indication: BRONCHITIS CHRONIC
     Dosage: 18 MCG
     Route: 055
     Dates: start: 20120101
  6. PREVALITE [Concomitant]
     Indication: GASTROOESOPHAGEAL REFLUX DISEASE
     Route: 048
  7. POTASSIUM CHLORIDE [Concomitant]
     Indication: SUPPLEMENTATION THERAPY
     Dosage: 15 MEQ
     Route: 048
  8. ASPIRIN [Concomitant]
     Dosage: 81 MG
     Route: 048
  9. ESTRADIOL [Concomitant]
     Route: 048
  10. PROPRANOLOL [Concomitant]
     Indication: TREMOR
     Route: 048
  11. XYZAL [Concomitant]
     Indication: SEASONAL ALLERGY
  12. REQUIP [Concomitant]
     Indication: RESTLESS LEGS SYNDROME
     Route: 048
  13. NASONEX [Concomitant]
     Route: 045

REACTIONS (2)
  - THROAT IRRITATION [None]
  - SPUTUM DISCOLOURED [None]
